FAERS Safety Report 5337967-3 (Version None)
Quarter: 2007Q2

REPORT INFORMATION
  Report Type: 
  Country: None (occurrence: None)
  Receive Date: 20070530
  Receipt Date: 20070521
  Transmission Date: 20071010
  Serious: Yes (Hospitalization)
  Sender: FDA-Public Use
  Company Number: PHBS2007NZ08543

PATIENT
  Sex: Male

DRUGS (3)
  1. CLOZARIL [Suspect]
     Route: 048
  2. LITHIUM CARBONATE [Concomitant]
  3. VALPROATE SODIUM [Concomitant]

REACTIONS (3)
  - CONSTIPATION [None]
  - INTESTINAL PROLAPSE [None]
  - SURGERY [None]
